FAERS Safety Report 22601564 (Version 4)
Quarter: 2024Q1

REPORT INFORMATION
  Report Type: Spontaneous
  Country: DE (occurrence: DE)
  Receive Date: 20230614
  Receipt Date: 20240104
  Transmission Date: 20240410
  Serious: Yes (Life-Threatening, Hospitalization, Other)
  Sender: FDA-Public Use
  Company Number: DE-BoehringerIngelheim-2023-BI-243910

PATIENT
  Age: 54 Year
  Sex: Male
  Weight: 80 kg

DRUGS (9)
  1. JARDIANCE [Suspect]
     Active Substance: EMPAGLIFLOZIN
     Indication: Left ventricular failure
     Route: 048
     Dates: end: 20230607
  2. ASPIRIN [Concomitant]
     Active Substance: ASPIRIN
     Indication: Coronary artery disease
     Route: 048
  3. Eplerenon 25 mg [Concomitant]
     Indication: Cardiac failure
     Route: 048
  4. Ivabradin 5 mg [Concomitant]
     Indication: Cardiac failure
     Dosage: 1-0-1
     Route: 048
  5. Entrasto 49/51 mg [Concomitant]
     Indication: Product used for unknown indication
     Dosage: 49/51 MG
  6. MONTELUKAST SODIUM [Concomitant]
     Active Substance: MONTELUKAST SODIUM
     Indication: Asthma
     Dosage: 0-0-1
     Route: 048
  7. ATORVASTATIN [Concomitant]
     Active Substance: ATORVASTATIN
     Indication: Hypocholesterolaemia
     Dosage: 0-0-1
     Route: 048
  8. BISOPROLOL [Concomitant]
     Active Substance: BISOPROLOL\BISOPROLOL FUMARATE
     Indication: Cardiac failure
     Route: 048
  9. Beclometason/Formoterol Spray [Concomitant]
     Indication: Asthma
     Dosage: FORM OF ADMIN.: SPRAY?1-0-1
     Route: 048

REACTIONS (11)
  - Urosepsis [Recovering/Resolving]
  - Escherichia infection [Recovering/Resolving]
  - Rhinitis [Unknown]
  - Pharyngitis [Unknown]
  - Bronchitis [Unknown]
  - Urinary tract infection [Not Recovered/Not Resolved]
  - Back pain [Recovered/Resolved]
  - Inflammation [Not Recovered/Not Resolved]
  - Glycosuria [Unknown]
  - Weight decreased [Unknown]
  - Depression [Recovered/Resolved]

NARRATIVE: CASE EVENT DATE: 20220101
